FAERS Safety Report 8588320-0 (Version None)
Quarter: 2012Q3

REPORT INFORMATION
  Report Type: 
  Country: None (occurrence: None)
  Receive Date: 20120813
  Receipt Date: 20120801
  Transmission Date: 20120928
  Serious: Yes (Hospitalization)
  Sender: FDA-Public Use
  Company Number: US-ELI_LILLY_AND_COMPANY-US201206006581

PATIENT
  Age: 50 Year
  Sex: Female

DRUGS (4)
  1. XANAX [Concomitant]
  2. OLANZAPINE [Suspect]
     Indication: PSYCHOTIC DISORDER
     Dosage: 2.5 MG, QD
  3. ZYPREXA [Suspect]
     Indication: ANXIETY
     Dosage: 2.5 MG, QD
  4. ZYPREXA [Suspect]
     Dosage: 2.5 MG, QD

REACTIONS (6)
  - ABDOMINAL DISCOMFORT [None]
  - INAPPROPRIATE SCHEDULE OF DRUG ADMINISTRATION [None]
  - OFF LABEL USE [None]
  - UTERINE LEIOMYOMA [None]
  - PALPITATIONS [None]
  - DIZZINESS [None]
